FAERS Safety Report 6189492-8 (Version None)
Quarter: 2009Q2

REPORT INFORMATION
  Report Type: 
  Country: None (occurrence: None)
  Receive Date: 20090512
  Receipt Date: 20090512
  Transmission Date: 20091009
  Serious: No
  Sender: FDA-Public Use
  Company Number: None

PATIENT
  Age: 42 Year
  Sex: Female
  Weight: 96.16 kg

DRUGS (1)
  1. AMOXICILLIN [Suspect]
     Indication: INFECTION
     Dosage: 875 MG BID PO
     Route: 048
     Dates: start: 20090504, end: 20090511

REACTIONS (1)
  - RASH [None]
